FAERS Safety Report 18617618 (Version 1)
Quarter: 2020Q4

REPORT INFORMATION
  Report Type: Spontaneous
  Country: US (occurrence: US)
  Receive Date: 20201214
  Receipt Date: 20201214
  Transmission Date: 20210114
  Serious: Yes (Hospitalization)
  Sender: FDA-Public Use
  Company Number: None

PATIENT
  Age: 55 Year
  Sex: Female

DRUGS (2)
  1. CARBOPLATIN 150 MG/15ML TEVA PARENTERAL MEDICINES [Suspect]
     Active Substance: CARBOPLATIN
     Indication: NEOPLASM MALIGNANT
     Dosage: ?          OTHER DOSE:150MG/5ML ;OTHER FREQUENCY:EVERY 21 DAYS ;?
     Route: 011
  2. DOCETAXEL 80 MG/8ML HOSPIRA [Suspect]
     Active Substance: DOCETAXEL
     Indication: NEOPLASM MALIGNANT
     Dosage: ?          OTHER DOSE:80MG/8ML ;OTHER FREQUENCY:EVERY 21 DAYS ;?
     Route: 011
     Dates: start: 20200805

REACTIONS (2)
  - Oedema peripheral [None]
  - Therapy interrupted [None]

NARRATIVE: CASE EVENT DATE: 202010
